FAERS Safety Report 4395695-5 (Version None)
Quarter: 2004Q2

REPORT INFORMATION
  Report Type: 
  Country: None (occurrence: None)
  Receive Date: 20040621
  Receipt Date: 20000225
  Transmission Date: 20050107
  Serious: Yes (Life-Threatening)
  Sender: FDA-Public Use
  Company Number: KII-2000-0003158

PATIENT
  Sex: Male

DRUGS (2)
  1. OXYCONTIN [Suspect]
     Dosage: 20 MG
  2. LORTAB [Suspect]

REACTIONS (1)
  - MULTIPLE DRUG OVERDOSE [None]
